FAERS Safety Report 4869390-X (Version None)
Quarter: 2005Q4

REPORT INFORMATION
  Report Type: 
  Country: None (occurrence: None)
  Receive Date: 20051230
  Receipt Date: 20051005
  Transmission Date: 20060501
  Serious: Yes (Hospitalization)
  Sender: FDA-Public Use
  Company Number: US-MERCK-0510USA04006

PATIENT
  Age: 64 Year
  Sex: Male
  Weight: 102 kg

DRUGS (9)
  1. VIOXX [Suspect]
     Indication: ARTHRITIS
     Route: 048
     Dates: start: 20020101, end: 20040101
  2. HYDRODIURIL [Concomitant]
     Route: 048
  3. TOPROL-XL [Concomitant]
     Route: 065
  4. LOTREL [Concomitant]
     Route: 065
  5. ALLOPURINOL [Concomitant]
     Route: 065
  6. PRILOSEC [Concomitant]
     Route: 065
  7. COLCHICINE [Concomitant]
     Route: 065
  8. ASTELIN [Concomitant]
     Route: 065
  9. NASACORT [Concomitant]
     Route: 065

REACTIONS (9)
  - ANAEMIA [None]
  - CARDIOVASCULAR DISORDER [None]
  - CEREBROVASCULAR ACCIDENT [None]
  - CONFUSIONAL STATE [None]
  - HYPERTENSIVE NEPHROPATHY [None]
  - HYPOKALAEMIA [None]
  - MYOCARDIAL ISCHAEMIA [None]
  - OVERDOSE [None]
  - RENAL FAILURE CHRONIC [None]
